FAERS Safety Report 7349029-4 (Version None)
Quarter: 2011Q1

REPORT INFORMATION
  Report Type: 
  Country: None (occurrence: None)
  Receive Date: 20110314
  Receipt Date: 20110308
  Transmission Date: 20110831
  Serious: Yes (Life-Threatening, Hospitalization)
  Sender: FDA-Public Use
  Company Number: FR-BAYER-2011-021126

PATIENT
  Sex: Female

DRUGS (1)
  1. NEXAVAR [Suspect]
     Indication: RENAL CELL CARCINOMA
     Dosage: 4 TABLETS/DAY
     Dates: start: 20101101, end: 20110301

REACTIONS (2)
  - THROMBOTIC STROKE [None]
  - GRAND MAL CONVULSION [None]
